FAERS Safety Report 5766359-8 (Version None)
Quarter: 2008Q2

REPORT INFORMATION
  Report Type: 
  Country: None (occurrence: None)
  Receive Date: 20080611
  Receipt Date: 20080530
  Transmission Date: 20081010
  Serious: Yes (Other)
  Sender: FDA-Public Use
  Company Number: IT-GENENTECH-262371

PATIENT
  Sex: Female

DRUGS (1)
  1. HERCEPTIN [Suspect]
     Indication: BREAST CANCER
     Dosage: 380 MG, UNK
     Route: 042
     Dates: start: 20071022, end: 20080303

REACTIONS (1)
  - VENTRICULAR EXTRASYSTOLES [None]
